FAERS Safety Report 20194975 (Version 1)
Quarter: 2021Q4

REPORT INFORMATION
  Report Type: Spontaneous
  Country: US (occurrence: None)
  Receive Date: 20211216
  Receipt Date: 20211216
  Transmission Date: 20220303
  Serious: No
  Sender: FDA-Public Use
  Company Number: None

PATIENT
  Age: 34 Year
  Sex: Female
  Weight: 67.5 kg

DRUGS (8)
  1. NURTEC ODT [Suspect]
     Active Substance: RIMEGEPANT SULFATE
     Indication: Headache
     Dosage: OTHER QUANTITY : 1 TABLET(S);?FREQUENCY : AS NEEDED;?
     Route: 060
     Dates: start: 20211202, end: 20211210
  2. NUVARING [Concomitant]
     Active Substance: ETHINYL ESTRADIOL\ETONOGESTREL
  3. MAGNESIUM [Concomitant]
     Active Substance: MAGNESIUM
  4. RIBOFLAVIN [Concomitant]
     Active Substance: RIBOFLAVIN
  5. OMEGA 3 [Concomitant]
     Active Substance: CAPSAICIN
  6. PROBIOTICS NOS [Concomitant]
     Active Substance: PROBIOTICS NOS
  7. ZYRTEC [Concomitant]
     Active Substance: CETIRIZINE HYDROCHLORIDE
  8. HYDROXYZINE [Concomitant]
     Active Substance: HYDROXYZINE HYDROCHLORIDE

REACTIONS (5)
  - Pruritus [None]
  - Pharyngeal swelling [None]
  - Dysphagia [None]
  - Urticaria [None]
  - Malaise [None]

NARRATIVE: CASE EVENT DATE: 20211210
